FAERS Safety Report 14525243 (Version 1)
Quarter: 2018Q1

REPORT INFORMATION
  Report Type: Spontaneous
  Country: US (occurrence: US)
  Receive Date: 20180213
  Receipt Date: 20180213
  Transmission Date: 20180509
  Serious: Yes (Hospitalization)
  Sender: FDA-Public Use
  Company Number: US-JNJFOC-20180213712

PATIENT
  Age: 61 Year
  Sex: Male

DRUGS (1)
  1. INVOKANA [Suspect]
     Active Substance: CANAGLIFLOZIN
     Indication: TYPE 2 DIABETES MELLITUS
     Route: 048
     Dates: start: 20140615

REACTIONS (5)
  - Abscess limb [Unknown]
  - Cellulitis [Unknown]
  - Toe amputation [Unknown]
  - Metatarsal excision [Unknown]
  - Foreign body [Unknown]

NARRATIVE: CASE EVENT DATE: 2015
